FAERS Safety Report 7290721-8 (Version None)
Quarter: 2011Q1

REPORT INFORMATION
  Report Type: 
  Country: None (occurrence: None)
  Receive Date: 20110201
  Receipt Date: 20110124
  Transmission Date: 20110831
  Serious: Yes (Death, Hospitalization, Other)
  Sender: FDA-Public Use
  Company Number: 2011AC000002

PATIENT
  Age: 84 Year
  Sex: Male

DRUGS (33)
  1. LUPRON [Concomitant]
  2. ASPIRIN [Concomitant]
  3. FOSAMAX [Concomitant]
  4. FLUZONE [Concomitant]
  5. INDOMETHACIN [Concomitant]
  6. CARVEDILOL [Concomitant]
  7. NAMENDA [Concomitant]
  8. ZESTRIL [Concomitant]
  9. LUPRON [Concomitant]
  10. OXYCODONE [Concomitant]
  11. ALPRAZOLAM [Concomitant]
  12. POTASSIUM [Concomitant]
  13. ZOMETA [Concomitant]
  14. ZOLADEX [Concomitant]
  15. MAGNESIUM [Concomitant]
  16. IRON [Concomitant]
  17. CEPHALEXIN [Concomitant]
  18. RESPERIDONE [Concomitant]
  19. BILBERRY SUPPLEMENT [Concomitant]
  20. ZYPREXA [Concomitant]
  21. DIGOXIN [Suspect]
     Indication: TACHYCARDIA
     Dosage: 0.125 MG; QD; PO
     Route: 048
     Dates: start: 20010101
  22. LIPITOR [Concomitant]
  23. SPIRONOLACTONE [Concomitant]
  24. DIGOXIN [Suspect]
     Dosage: 0.125 MG; PO
     Route: 048
     Dates: start: 20080101
  25. METOPROLOL [Concomitant]
  26. LEXAPRO [Concomitant]
  27. MULTIVITAMIN [Concomitant]
  28. HEMRIL-30 [Concomitant]
  29. AMIODARONE HCL [Concomitant]
  30. LASIX [Concomitant]
  31. CASODEX [Concomitant]
  32. ARICEPT [Concomitant]
  33. MIRALAX [Concomitant]

REACTIONS (50)
  - AGITATION [None]
  - OBSTRUCTIVE AIRWAYS DISORDER [None]
  - MITRAL VALVE INCOMPETENCE [None]
  - PERICARDIAL EFFUSION [None]
  - OSTEOPENIA [None]
  - PRODUCT QUALITY ISSUE [None]
  - BONE PAIN [None]
  - PULSE ABSENT [None]
  - CONFUSIONAL STATE [None]
  - SENSATION OF HEAVINESS [None]
  - ATRIOVENTRICULAR BLOCK FIRST DEGREE [None]
  - TRICUSPID VALVE INCOMPETENCE [None]
  - HYPOTHYROIDISM [None]
  - MEMORY IMPAIRMENT [None]
  - TOXICITY TO VARIOUS AGENTS [None]
  - OSTEOPOROSIS [None]
  - ECONOMIC PROBLEM [None]
  - METASTASES TO SPINE [None]
  - HEPATIC CYST [None]
  - SPINAL OSTEOARTHRITIS [None]
  - AORTIC VALVE INCOMPETENCE [None]
  - ABDOMINAL DISCOMFORT [None]
  - RIB FRACTURE [None]
  - ATRIAL FIBRILLATION [None]
  - PAIN [None]
  - BRADYCARDIA [None]
  - BUNDLE BRANCH BLOCK LEFT [None]
  - DYSKINESIA [None]
  - MYOCARDIAL ISCHAEMIA [None]
  - IRON DEFICIENCY ANAEMIA [None]
  - PROSTATE CANCER STAGE IV [None]
  - TACHYCARDIA [None]
  - AORTIC STENOSIS [None]
  - PULMONARY HYPERTENSION [None]
  - RENAL FAILURE ACUTE [None]
  - DRUG DOSE OMISSION [None]
  - CARDIAC FAILURE CONGESTIVE [None]
  - DYSLIPIDAEMIA [None]
  - TREATMENT NONCOMPLIANCE [None]
  - CARDIAC FLUTTER [None]
  - DEMENTIA [None]
  - DEPRESSION [None]
  - WEIGHT DECREASED [None]
  - ANHEDONIA [None]
  - INJURY [None]
  - ARTERIOSCLEROSIS CORONARY ARTERY [None]
  - PROSTATE CANCER METASTATIC [None]
  - MITRAL VALVE CALCIFICATION [None]
  - ANAEMIA [None]
  - CONTUSION [None]
